FAERS Safety Report 7223631-2 (Version None)
Quarter: 2011Q1

REPORT INFORMATION
  Report Type: 
  Country: None (occurrence: None)
  Receive Date: 20110112
  Receipt Date: 20100916
  Transmission Date: 20110831
  Serious: No
  Sender: FDA-Public Use
  Company Number: US-ALLERGAN-1012028US

PATIENT
  Age: 88 Year
  Sex: Female

DRUGS (2)
  1. RESTASIS [Suspect]
     Indication: DRY EYE
     Dosage: 1 GTT, BID
     Route: 047
     Dates: end: 20100914
  2. SYSTANE [Concomitant]
     Indication: DRY EYE
     Dosage: 1 GTT, 2-3 TIMES A DAY
     Route: 047
     Dates: start: 20100510

REACTIONS (2)
  - BURNING SENSATION [None]
  - SKIN BURNING SENSATION [None]
